FAERS Safety Report 9314377 (Version 2)
Quarter: 2013Q2

REPORT INFORMATION
  Report Type: Spontaneous
  Country: US (occurrence: US)
  Receive Date: 20130529
  Receipt Date: 20130605
  Transmission Date: 20140414
  Serious: Yes (Other)
  Sender: FDA-Public Use
  Company Number: US-BAYER-2013-065999

PATIENT
  Age: 25 Year
  Sex: Female
  Weight: 99.77 kg

DRUGS (6)
  1. YASMIN [Suspect]
     Dosage: UNK
     Dates: start: 200305
  2. HYDROCODONE W/APAP [Concomitant]
     Dosage: 7.5/750
  3. STRATTERA [Concomitant]
     Dosage: 40 MG, UNK
  4. ATOMOXETINE [Concomitant]
     Dosage: UNK
     Dates: start: 20040719
  5. MORPHINE [Concomitant]
  6. VERSED [Concomitant]

REACTIONS (7)
  - Deep vein thrombosis [None]
  - Injury [None]
  - Pain [None]
  - General physical health deterioration [None]
  - Emotional distress [None]
  - Anxiety [None]
  - Pain [None]
